FAERS Safety Report 8681314 (Version 2)
Quarter: 2012Q4

REPORT INFORMATION
  Report Type: Spontaneous
  Country: US (occurrence: None)
  Receive Date: 20120709
  Receipt Date: 20120904
  Transmission Date: 20130627
  Serious: Yes (Other)
  Sender: FDA-Public Use
  Company Number: ACO_30960_2012

PATIENT
  Age: 66 Year
  Sex: Male

DRUGS (2)
  1. AMPYRA [Suspect]
     Indication: DRUG USE FOR UNKNOWN INDICATION
     Route: 048
     Dates: start: 201203
  2. CELEBREX [Concomitant]

REACTIONS (6)
  - Hip arthroplasty [None]
  - Myalgia [None]
  - Anxiety [None]
  - Arthritis [None]
  - Groin pain [None]
  - Adverse drug reaction [None]
